FAERS Safety Report 18199503 (Version 1)
Quarter: 2020Q3

REPORT INFORMATION
  Report Type: Spontaneous
  Country: CN (occurrence: CN)
  Receive Date: 20200826
  Receipt Date: 20200826
  Transmission Date: 20201103
  Serious: Yes (Life-Threatening, Hospitalization, Other)
  Sender: FDA-Public Use
  Company Number: CN-ASTRAZENECA-2020SE98859

PATIENT
  Age: 75 Year
  Sex: Male

DRUGS (9)
  1. MONTELUKAST [Concomitant]
     Active Substance: MONTELUKAST SODIUM
     Indication: CHRONIC OBSTRUCTIVE PULMONARY DISEASE
     Route: 048
  2. KELEBITUO [Concomitant]
     Active Substance: LEVOFLOXACIN
     Indication: ANTI-INFECTIVE THERAPY
  3. SERETIDE [Concomitant]
     Active Substance: FLUTICASONE PROPIONATE\SALMETEROL XINAFOATE
  4. SYMBICORT [Suspect]
     Active Substance: BUDESONIDE\FORMOTEROL FUMARATE DIHYDRATE
     Dosage: UNKNOWN UNKNOWN
     Route: 055
  5. BREZTRI AEROSPHERE [Suspect]
     Active Substance: BUDESONIDE\FORMOTEROL\GLYCOPYRRONIUM
     Dosage: 1 PUFF, BID
     Route: 055
  6. COMPOUND METHOXYPHENAMINE [Concomitant]
     Indication: ANTI-IA2 ANTIBODY
     Dosage: 2 CAPSULES EACH TIME TID
     Route: 048
  7. OMALIZUMAB. [Concomitant]
     Active Substance: OMALIZUMAB
     Indication: ANTI-IA2 ANTIBODY
     Route: 058
  8. BREZTRI AEROSPHERE [Suspect]
     Active Substance: BUDESONIDE\FORMOTEROL\GLYCOPYRRONIUM
     Dosage: 2 INHALATIONS BID
     Route: 055
     Dates: start: 202005
  9. CALTRATE [Concomitant]
     Active Substance: CALCIUM CARBONATE

REACTIONS (13)
  - Asthma [Unknown]
  - Dysphonia [Recovering/Resolving]
  - Mediastinal mass [Unknown]
  - Intentional product misuse [Unknown]
  - Hypertension [Unknown]
  - Bone pain [Recovered/Resolved]
  - Arteriosclerosis [Unknown]
  - Benign prostatic hyperplasia [Unknown]
  - Hepatic cyst [Unknown]
  - Oedema peripheral [Recovered/Resolved]
  - Hepatic steatosis [Unknown]
  - Dry mouth [Recovering/Resolving]
  - Chronic obstructive pulmonary disease [Unknown]

NARRATIVE: CASE EVENT DATE: 20200514
